FAERS Safety Report 6463865-8 (Version None)
Quarter: 2009Q4

REPORT INFORMATION
  Report Type: 
  Country: None (occurrence: None)
  Receive Date: 20091201
  Receipt Date: 20091121
  Transmission Date: 20100525
  Serious: Yes (Other)
  Sender: FDA-Public Use
  Company Number: US-ROCHE-666163

PATIENT
  Sex: Female
  Weight: 21 kg

DRUGS (5)
  1. TAMIFLU [Suspect]
     Dosage: STRENGTH: 12 MG/ML
     Route: 048
     Dates: start: 20090510, end: 20090710
  2. ROCEPHIN [Concomitant]
     Dosage: OTHER INDICATION: ASPHENIC, FREQUENCY: X2
     Route: 030
     Dates: start: 20090510, end: 20090510
  3. TYLENOL (CAPLET) [Concomitant]
     Dosage: FREQ: X1
     Route: 048
     Dates: start: 20090510, end: 20090510
  4. AMOXIL [Concomitant]
     Indication: ASPLENIA
     Dosage: OTHER INDICATION: PROPHYLAXIS, CHRONIC DAILY MEDICATION
     Route: 048
  5. FOLIC ACID [Concomitant]
     Dosage: CHRONIC DAILY MEDICATION
     Route: 048

REACTIONS (1)
  - HAEMOLYSIS [None]
